FAERS Safety Report 12444890 (Version 2)
Quarter: 2016Q2

REPORT INFORMATION
  Report Type: Spontaneous
  Country: US (occurrence: US)
  Receive Date: 20160607
  Receipt Date: 20160627
  Transmission Date: 20160815
  Serious: No
  Sender: FDA-Public Use
  Company Number: US-PFIZER INC-2016232446

PATIENT
  Age: 69 Year
  Sex: Female

DRUGS (25)
  1. NASONEX [Concomitant]
     Active Substance: MOMETASONE FUROATE
     Dosage: 50 UG, 1 SPRAY IN EACH NOSTRIL BID PRN
     Route: 045
  2. TRAZODONE HYDROCHLORIDE. [Concomitant]
     Active Substance: TRAZODONE HYDROCHLORIDE
     Dosage: 100 MG, 1-2 QHS
     Route: 048
  3. FLUOXETINE HCL [Concomitant]
     Active Substance: FLUOXETINE HYDROCHLORIDE
     Dosage: 20 MG, DAILY
     Route: 048
  4. ACETAMINOPHEN\HYDROCODONE BITARTRATE [Concomitant]
     Active Substance: ACETAMINOPHEN\HYDROCODONE BITARTRATE
     Dosage: (HYDROCODONE-10MG, ACETAMINOPHEN-325MG), ONE TID OR QID PRN
     Route: 048
  5. PLAVIX [Concomitant]
     Active Substance: CLOPIDOGREL BISULFATE
     Dosage: 75 MG, DAILY
  6. CLONAZEPAM. [Concomitant]
     Active Substance: CLONAZEPAM
     Dosage: UNK, AS NEEDED
  7. XOPENEX HFA [Concomitant]
     Active Substance: LEVALBUTEROL TARTRATE
     Dosage: (INHALE 2 PUFFS BY MOUTH EVERY 6 HOURS) AS NEEDED
     Route: 048
  8. LOTRIMIN AF ANTIFUNGAL [Concomitant]
     Active Substance: MICONAZOLE NITRATE
     Dosage: UNK, 2X/DAY
     Route: 061
  9. NAPROSYN [Concomitant]
     Active Substance: NAPROXEN
     Dosage: 500 MG, UNK
  10. NEURONTIN [Concomitant]
     Active Substance: GABAPENTIN
     Dosage: 300 MG, UNK
  11. NEURONTIN [Concomitant]
     Active Substance: GABAPENTIN
     Dosage: 800 MG, UNK
  12. ZOFRAN [Concomitant]
     Active Substance: ONDANSETRON HYDROCHLORIDE
     Indication: NAUSEA
     Dosage: 4 MG TABLET EVERY EIGHT HOURS AS NEEDED
     Route: 048
  13. LYRICA [Suspect]
     Active Substance: PREGABALIN
     Indication: DIABETIC NEUROPATHY
     Dosage: 75 MG, 2X/DAY
     Route: 048
     Dates: start: 20160219
  14. VOLTAREN [Concomitant]
     Active Substance: DICLOFENAC SODIUM
     Dosage: 1 % GEL APPLY 1-2GRAMS TO AFFECTED AREA 2-3 TIMES DAILY
     Route: 061
  15. COLACE [Concomitant]
     Active Substance: DOCUSATE SODIUM
     Dosage: 100 MG, 2X/DAY
     Route: 048
  16. LEVEMIR [Concomitant]
     Active Substance: INSULIN DETEMIR
     Indication: BLOOD GLUCOSE DECREASED
     Dosage: INJECT 4U SC EVERY BEDTIME HOLD DOSE
     Route: 058
  17. ALENDRONATE SODIUM. [Concomitant]
     Active Substance: ALENDRONATE SODIUM
     Dosage: 35 MG, WEEKLY
     Route: 048
  18. NEURONTIN [Concomitant]
     Active Substance: GABAPENTIN
     Dosage: 600 MG, UNK
  19. VICODIN [Concomitant]
     Active Substance: ACETAMINOPHEN\HYDROCODONE BITARTRATE
  20. ZANAFLEX [Concomitant]
     Active Substance: TIZANIDINE HYDROCHLORIDE
     Dosage: 4 MG TID, AS NEEDED
     Route: 048
  21. CELEBREX [Concomitant]
     Active Substance: CELECOXIB
     Dosage: 200 MG, UNK
  22. HYDROCODONE [Concomitant]
     Active Substance: HYDROCODONE
     Dosage: UNK
  23. SIMVASTATIN. [Concomitant]
     Active Substance: SIMVASTATIN
     Dosage: 20 MG, DAILY (AT BEDTIME)
     Route: 048
  24. TRAMADOL HCL [Concomitant]
     Active Substance: TRAMADOL HYDROCHLORIDE
     Dosage: 50 MG, 1 TO 2 TID, AS NEEDED
     Route: 048
  25. BYDUREON [Concomitant]
     Active Substance: EXENATIDE
     Dosage: 2 MG, ONCE A WEEK

REACTIONS (1)
  - Lower limb fracture [Unknown]
